FAERS Safety Report 20596571 (Version 1)
Quarter: 2022Q1

REPORT INFORMATION
  Report Type: Spontaneous
  Country: US (occurrence: US)
  Receive Date: 20220315
  Receipt Date: 20220315
  Transmission Date: 20220423
  Serious: No
  Sender: FDA-Public Use
  Company Number: US-PFIZER INC-202101162425

PATIENT
  Age: 21 Year
  Sex: Male
  Weight: 50.8 kg

DRUGS (1)
  1. GENOTROPIN [Suspect]
     Active Substance: SOMATROPIN
     Indication: Diabetes insipidus
     Dosage: 0.8 MG, DAILY
     Dates: start: 2002

REACTIONS (5)
  - Product dose omission issue [Unknown]
  - Device use error [Unknown]
  - Device breakage [Unknown]
  - Device information output issue [Unknown]
  - Off label use [Unknown]

NARRATIVE: CASE EVENT DATE: 20210902
